FAERS Safety Report 4738550-0 (Version None)
Quarter: 2005Q3

REPORT INFORMATION
  Report Type: 
  Country: None (occurrence: None)
  Receive Date: 20050808
  Receipt Date: 20050808
  Transmission Date: 20060218
  Serious: No
  Sender: FDA-Public Use
  Company Number: None

PATIENT

DRUGS (3)
  1. RISPERDAL [Suspect]
     Dosage: TABLET ORALLY DISINTEGRATING
     Route: 048
  2. RISPERDAL [Suspect]
     Dosage: TABLET ORALLY DISINTEGRATING
     Route: 048
  3. RISPERDAL [Suspect]
     Dosage: TABLET ORALLY DISINTEGRATING
     Route: 048

REACTIONS (4)
  - DRUG DISPENSING ERROR [None]
  - INTERCEPTED MEDICATION ERROR [None]
  - MEDICATION ERROR [None]
  - WRONG DRUG ADMINISTERED [None]
